FAERS Safety Report 5203458-3 (Version None)
Quarter: 2007Q1

REPORT INFORMATION
  Report Type: 
  Country: None (occurrence: None)
  Receive Date: 20070110
  Receipt Date: 20070104
  Transmission Date: 20070707
  Serious: Yes (Death)
  Sender: FDA-Public Use
  Company Number: US-BRISTOL-MYERS SQUIBB COMPANY-13631544

PATIENT
  Age: 56 Year
  Sex: Female
  Weight: 67 kg

DRUGS (7)
  1. PACLITAXEL [Suspect]
     Indication: NON-SMALL CELL LUNG CANCER STAGE IV
     Route: 041
     Dates: start: 20061023, end: 20061023
  2. TAGAMET [Concomitant]
     Indication: PREMEDICATION
  3. BENADRYL [Concomitant]
     Indication: PREMEDICATION
  4. DECADRON [Concomitant]
     Indication: PREMEDICATION
  5. KYTRIL [Concomitant]
     Indication: PREMEDICATION
  6. TUSSIONEX [Concomitant]
  7. OXYGEN [Concomitant]

REACTIONS (1)
  - RESPIRATORY FAILURE [None]
